FAERS Safety Report 16994657 (Version 2)
Quarter: 2020Q4

REPORT INFORMATION
  Report Type: Report from Study
  Country: CA (occurrence: CA)
  Receive Date: 20191105
  Receipt Date: 20201105
  Transmission Date: 20210113
  Serious: Yes (Other)
  Sender: FDA-Public Use
  Company Number: CA-JNJFOC-20191042747

PATIENT
  Age: 31 Year
  Sex: Female
  Weight: 51.8 kg

DRUGS (1)
  1. STELARA [Suspect]
     Active Substance: USTEKINUMAB
     Indication: CROHN^S DISEASE
     Route: 058

REACTIONS (2)
  - Ovarian cyst [Recovering/Resolving]
  - Rectal abscess [Recovered/Resolved]

NARRATIVE: CASE EVENT DATE: 20191002
